FAERS Safety Report 4510427-5 (Version None)
Quarter: 2004Q4

REPORT INFORMATION
  Report Type: 
  Country: None (occurrence: None)
  Receive Date: 20041124
  Receipt Date: 20041013
  Transmission Date: 20050328
  Serious: Yes (Other)
  Sender: FDA-Public Use
  Company Number: US-GLAXOSMITHKLINE-A0529678A

PATIENT
  Age: 67 Year
  Sex: Female

DRUGS (3)
  1. LAMICTAL [Suspect]
     Indication: BIPOLAR DISORDER
     Route: 048
  2. DIABETES MEDICATION [Concomitant]
  3. ARTHRITIS MEDICATION [Concomitant]

REACTIONS (10)
  - CARDIAC FAILURE CONGESTIVE [None]
  - DYSPNOEA [None]
  - EYE OEDEMA [None]
  - FACE OEDEMA [None]
  - FUNGAL RASH [None]
  - MALAISE [None]
  - OEDEMA PERIPHERAL [None]
  - PAIN [None]
  - RASH GENERALISED [None]
  - URTICARIA [None]
